FAERS Safety Report 25172518 (Version 1)
Quarter: 2025Q2

REPORT INFORMATION
  Report Type: Spontaneous
  Country: US (occurrence: None)
  Receive Date: 20250407
  Receipt Date: 20250407
  Transmission Date: 20250716
  Serious: Yes (Hospitalization)
  Sender: FDA-CTU
  Company Number: None

PATIENT
  Age: 78 Year
  Sex: Male

DRUGS (19)
  1. REPATHA [Suspect]
     Active Substance: EVOLOCUMAB
     Indication: Hyperlipidaemia
     Dosage: OTHER FREQUENCY : Q 2 WEEKS;?
     Route: 058
     Dates: start: 20220906
  2. REPATHA [Suspect]
     Active Substance: EVOLOCUMAB
     Indication: Arteriosclerosis
  3. ELIQUIS [Concomitant]
     Active Substance: APIXABAN
  4. LISINOPRIL [Concomitant]
     Active Substance: LISINOPRIL
  5. CARVEDILOL [Concomitant]
     Active Substance: CARVEDILOL
  6. ROSUVASTATIN [Concomitant]
     Active Substance: ROSUVASTATIN
  7. AMLODIPINE [Concomitant]
     Active Substance: AMLODIPINE BESYLATE
  8. VITAMINS [Concomitant]
     Active Substance: VITAMINS
  9. VITAMIN B COMPLEX [Concomitant]
     Active Substance: CYANOCOBALAMIN\DEXPANTHENOL\NIACINAMIDE\PYRIDOXINE HYDROCHLORIDE\RIBOFLAVIN 5^-PHOSPHATE SODIUM\THIA
  10. VITAMIN D [Concomitant]
     Active Substance: VITAMIN D NOS
  11. AMBIEN [Concomitant]
     Active Substance: ZOLPIDEM TARTRATE
  12. Preservision AERDS [Concomitant]
  13. ZINC [Concomitant]
     Active Substance: ZINC
  14. BRILINTA [Concomitant]
     Active Substance: TICAGRELOR
  15. PANTOPRAZOLE [Concomitant]
     Active Substance: PANTOPRAZOLE
  16. JARDIANCE [Concomitant]
     Active Substance: EMPAGLIFLOZIN
  17. FUROSEMIDE [Concomitant]
     Active Substance: FUROSEMIDE
  18. LANTUS [Concomitant]
     Active Substance: INSULIN GLARGINE
  19. INSULIN ASPART [Concomitant]
     Active Substance: INSULIN ASPART

REACTIONS (1)
  - Low density lipoprotein decreased [None]

NARRATIVE: CASE EVENT DATE: 20250303
